FAERS Safety Report 7408368-9 (Version None)
Quarter: 2011Q2

REPORT INFORMATION
  Report Type: 
  Country: None (occurrence: None)
  Receive Date: 20110412
  Receipt Date: 20110404
  Transmission Date: 20111010
  Serious: Yes (Hospitalization)
  Sender: FDA-Public Use
  Company Number: JP-SANOFI-AVENTIS-2011SA019369

PATIENT
  Age: 69 Year
  Sex: Male
  Weight: 62.8 kg

DRUGS (2)
  1. LENDORMIN [Suspect]
     Route: 048
     Dates: start: 20110322, end: 20110323
  2. MYSLEE [Suspect]
     Route: 048
     Dates: start: 20110320, end: 20110321

REACTIONS (2)
  - HEPATIC FUNCTION ABNORMAL [None]
  - HEPATOCELLULAR INJURY [None]
